FAERS Safety Report 25870642 (Version 1)
Quarter: 2025Q4

REPORT INFORMATION
  Report Type: Spontaneous
  Country: EU (occurrence: EU)
  Receive Date: 20251001
  Receipt Date: 20251001
  Transmission Date: 20260118
  Serious: Yes (Death, Other)
  Sender: AMGEN
  Company Number: EU-AMGEN-ROUSP2025192756

PATIENT
  Age: 43 Year
  Sex: Female

DRUGS (8)
  1. TRASTUZUMAB [Suspect]
     Active Substance: TRASTUZUMAB
     Indication: HER2 positive breast cancer
     Dosage: UNK
     Route: 065
     Dates: start: 2018
  2. TRASTUZUMAB [Suspect]
     Active Substance: TRASTUZUMAB
     Dosage: 408 MILLIGRAM
     Route: 065
     Dates: start: 2021
  3. EPIRUBICIN [Concomitant]
     Active Substance: EPIRUBICIN
     Indication: Breast cancer
     Dosage: DOSE-DENSE
     Dates: start: 2018
  4. CYCLOPHOSPHAMIDE [Concomitant]
     Active Substance: CYCLOPHOSPHAMIDE
     Indication: Breast cancer
     Dosage: UNK UNK, QWK
     Dates: start: 2018
  5. PACLITAXEL [Concomitant]
     Active Substance: PACLITAXEL
     Dosage: UNK
     Dates: start: 2018
  6. HERCEPTIN [Concomitant]
     Active Substance: TRASTUZUMAB
     Dosage: UNK
     Dates: start: 2018
  7. DOCETAXEL [Concomitant]
     Active Substance: DOCETAXEL
     Dosage: 115 MILLIGRAM
  8. PERTUZUMAB [Concomitant]
     Active Substance: PERTUZUMAB
     Dosage: 840 MILLIGRAM

REACTIONS (6)
  - Death [Fatal]
  - Metastases to central nervous system [Unknown]
  - Metastases to liver [Unknown]
  - Metastases to lung [Unknown]
  - Haemangioma of liver [Unknown]
  - Bone lesion [Unknown]

NARRATIVE: CASE EVENT DATE: 20191001
